FAERS Safety Report 6910417 (Version 3)
Quarter: 2020Q3

REPORT INFORMATION
  Report Type: Report from Study
  Country: DE (occurrence: DE)
  Receive Date: 20090216
  Receipt Date: 20090623
  Transmission Date: 20201105
  Serious: Yes (Hospitalization)
  Sender: FDA-Public Use
  Company Number: DE-ROCHE-553379

PATIENT
  Age: 75 Year
  Sex: Female
  Weight: 93 kg

DRUGS (12)
  1. PREDNISOLONE. [Concomitant]
     Active Substance: PREDNISOLONE
     Dates: start: 20071029
  2. THALOMID [Concomitant]
     Active Substance: THALIDOMIDE
  3. ACTRAPHANE [Concomitant]
     Dosage: ACTRAPHANE 30/70. DOSE: TO PLAN
  4. AMITRIPTYLINE [Concomitant]
     Active Substance: AMITRIPTYLINE
     Dosage: SAROTEN 50
  5. RAMIPRIL. [Concomitant]
     Active Substance: RAMIPRIL
  6. NORVASC [Concomitant]
     Active Substance: AMLODIPINE BESYLATE
     Dosage: NORVASC 5 PLUS. DOSE 0.6DFX2/D
  7. HYDROCHLOROTHIAZIDE\RAMIPRIL [Concomitant]
     Active Substance: HYDROCHLOROTHIAZIDE\RAMIPRIL
  8. IBANDRONIC ACID. [Suspect]
     Active Substance: IBANDRONIC ACID
     Indication: PLASMA CELL MYELOMA
     Dosage: PER PROTOCOL: 6MG/6ML OVER 15 MINUTES
     Route: 042
     Dates: start: 20070514
  9. MELPHALAN. [Concomitant]
     Active Substance: MELPHALAN
     Dates: start: 20071029
  10. ASPIRIN. [Concomitant]
     Active Substance: ASPIRIN
     Dosage: ASS 100
  11. HYDROCHLOROTHIAZIDE\RAMIPRIL [Concomitant]
     Active Substance: HYDROCHLOROTHIAZIDE\RAMIPRIL
  12. ACETAMINOPHEN. [Concomitant]
     Active Substance: ACETAMINOPHEN

REACTIONS (2)
  - Pneumonia [Recovered/Resolved]
  - Pancytopenia [Recovering/Resolving]

NARRATIVE: CASE EVENT DATE: 20080318
